FAERS Safety Report 7080601-5 (Version None)
Quarter: 2010Q4

REPORT INFORMATION
  Report Type: 
  Country: None (occurrence: None)
  Receive Date: 20101103
  Receipt Date: 20101027
  Transmission Date: 20110411
  Serious: Yes (Other)
  Sender: FDA-Public Use
  Company Number: GB-SP-2010-06244

PATIENT

DRUGS (1)
  1. IMMUCYST [Suspect]
     Indication: BLADDER CANCER
     Route: 043

REACTIONS (18)
  - ARTHRALGIA [None]
  - BLADDER CANCER RECURRENT [None]
  - BOVINE TUBERCULOSIS [None]
  - DIARRHOEA [None]
  - DYSURIA [None]
  - FATIGUE [None]
  - FLANK PAIN [None]
  - GROIN PAIN [None]
  - HAEMATURIA [None]
  - HEADACHE [None]
  - INCONTINENCE [None]
  - INFLUENZA LIKE ILLNESS [None]
  - MICTURITION URGENCY [None]
  - NAUSEA [None]
  - NEURALGIA [None]
  - POLLAKIURIA [None]
  - URETHRAL DISCHARGE [None]
  - URINARY CYSTECTOMY [None]
